FAERS Safety Report 8360279-0 (Version None)
Quarter: 2012Q2

REPORT INFORMATION
  Report Type: 
  Country: None (occurrence: None)
  Receive Date: 20120515
  Receipt Date: 20120506
  Transmission Date: 20120825
  Serious: Yes (Death, Life-Threatening)
  Sender: FDA-Public Use
  Company Number: SE-BAYER-200930640GPV

PATIENT
  Age: 16 Year
  Sex: Female
  Weight: 70 kg

DRUGS (1)
  1. YAZ [Suspect]
     Indication: CONTRACEPTION
     Route: 048
     Dates: start: 20081101, end: 20090321

REACTIONS (13)
  - NECK PAIN [None]
  - HEADACHE [None]
  - BACK PAIN [None]
  - DIZZINESS [None]
  - ARTHRALGIA [None]
  - PALPITATIONS [None]
  - ANGINA PECTORIS [None]
  - NAUSEA [None]
  - PULMONARY EMBOLISM [None]
  - CHEST PAIN [None]
  - DYSPNOEA [None]
  - MENSTRUAL DISORDER [None]
  - MALAISE [None]
